FAERS Safety Report 6055074-1 (Version None)
Quarter: 2009Q1

REPORT INFORMATION
  Report Type: 
  Country: None (occurrence: None)
  Receive Date: 20090128
  Receipt Date: 20090116
  Transmission Date: 20090719
  Serious: Yes (Other)
  Sender: FDA-Public Use
  Company Number: JP-ROCHE-610037

PATIENT
  Age: 55 Year
  Sex: Female

DRUGS (7)
  1. TAMIFLU [Suspect]
     Indication: INFLUENZA
     Dosage: DRUG: TAMIFLU CAPSULE.
     Route: 048
     Dates: start: 20090108, end: 20090108
  2. MUCODYNE [Concomitant]
     Route: 048
     Dates: start: 20090108
  3. DASEN [Concomitant]
     Route: 048
     Dates: start: 20090108
  4. MUCOSTA [Concomitant]
     Dosage: FORM: ORAL FORMULATION (NOT OTHERWISE SPECIFIED).
     Route: 048
     Dates: start: 20090108
  5. ISODINE [Concomitant]
     Dosage: DRUG: ISODINE GARGLE, ROUTE: OROPHARINGEAL, FORM: GARGLE.
     Route: 050
     Dates: start: 20090108
  6. POTACOL-R [Concomitant]
     Dosage: ROUTE: INJECTABLE (NOT OTHERWISE SPECIFIED)
     Route: 050
     Dates: start: 20090108
  7. NEOLAMIN 3 B [Concomitant]
     Dosage: ROUTE: INJECTABLE (NOT OTHERWISE SPECIFIED)
     Route: 050
     Dates: start: 20090108

REACTIONS (1)
  - LOSS OF CONSCIOUSNESS [None]
